FAERS Safety Report 18528893 (Version 2)
Quarter: 2020Q4

REPORT INFORMATION
  Report Type: Spontaneous
  Country: US (occurrence: US)
  Receive Date: 20201120
  Receipt Date: 20201203
  Transmission Date: 20210114
  Serious: No
  Sender: FDA-Public Use
  Company Number: US-PFIZER INC-2020457371

PATIENT
  Age: 66 Year
  Sex: Female
  Weight: 71.2 kg

DRUGS (10)
  1. IBRANCE [Suspect]
     Active Substance: PALBOCICLIB
     Indication: BREAST CANCER METASTATIC
  2. BUSPIRONE HCL [Concomitant]
     Active Substance: BUSPIRONE HYDROCHLORIDE
     Dosage: UNK
  3. SYNTHROID [Concomitant]
     Active Substance: LEVOTHYROXINE SODIUM
     Dosage: UNK
  4. IBRANCE [Suspect]
     Active Substance: PALBOCICLIB
     Indication: PLASMA CELL MYELOMA
     Dosage: 100 MG, CYCLIC (21 DAYS ON, 7 DAYS OFF)
     Route: 048
     Dates: start: 20201016
  5. FASLODEX [Concomitant]
     Active Substance: FULVESTRANT
     Dosage: UNK
  6. PAXIL [Concomitant]
     Active Substance: PAROXETINE HYDROCHLORIDE
     Dosage: UNK
  7. XARELTO [Concomitant]
     Active Substance: RIVAROXABAN
     Dosage: UNK
  8. LIDOCAINE. [Concomitant]
     Active Substance: LIDOCAINE
     Dosage: UNK
  9. MS CONTIN [Concomitant]
     Active Substance: MORPHINE SULFATE
     Dosage: UNK
  10. GABAPENTIN. [Concomitant]
     Active Substance: GABAPENTIN
     Dosage: UNK

REACTIONS (6)
  - Anaemia [Unknown]
  - Off label use [Unknown]
  - Visual impairment [Unknown]
  - Fatigue [Unknown]
  - White blood cell count decreased [Unknown]
  - Nausea [Unknown]
